FAERS Safety Report 8759761 (Version 5)
Quarter: 2013Q2

REPORT INFORMATION
  Report Type: Spontaneous
  Country: US (occurrence: US)
  Receive Date: 20120829
  Receipt Date: 20130424
  Transmission Date: 20140414
  Serious: Yes (Hospitalization)
  Sender: FDA-Public Use
  Company Number: US-B.I. PHARMACEUTICALS,INC./RIDGEFIELD-2012-BP-20327BP

PATIENT
  Age: 83 Year
  Sex: Female
  Weight: 54.43 kg

DRUGS (14)
  1. PRADAXA [Suspect]
     Indication: ATRIAL FIBRILLATION
     Dosage: 300 MG
     Route: 048
     Dates: start: 20110531, end: 20120217
  2. ATIVAN [Concomitant]
     Dosage: 0.5 MG
  3. VITAMIN D [Concomitant]
     Dosage: 2000 U
  4. COMBIVENT [Concomitant]
     Route: 055
  5. ALPRAZOLAM [Concomitant]
  6. DILTIAZEM [Concomitant]
     Dosage: 240 MG
     Dates: start: 201003
  7. DIGOXIN [Concomitant]
     Dosage: 0.25 MG
     Dates: start: 201003
  8. FENOFIBRATE [Concomitant]
     Dosage: 134 MG
  9. LEXAPRO [Concomitant]
     Dosage: 10 MG
  10. LOSARTAN POTASSIUM [Concomitant]
     Dosage: 50 MG
     Dates: start: 201005
  11. OMEPRAZOLE [Concomitant]
     Dosage: 20 MG
     Dates: start: 201004
  12. ZETIA [Concomitant]
     Dosage: 10 MG
     Dates: start: 201002
  13. CRESTOR [Concomitant]
     Dates: start: 201202
  14. JANUMET [Concomitant]
     Dates: start: 201111

REACTIONS (1)
  - Lower gastrointestinal haemorrhage [Recovered/Resolved]
